FAERS Safety Report 10949588 (Version 1)
Quarter: 2015Q1

REPORT INFORMATION
  Report Type: Spontaneous
  Country: US (occurrence: US)
  Receive Date: 20150324
  Receipt Date: 20150324
  Transmission Date: 20150721
  Serious: No
  Sender: FDA-Public Use
  Company Number: US-009507513-1503USA010387

PATIENT
  Sex: Female

DRUGS (1)
  1. COPPERTONE SUNLESS TANNING GRADUAL TAN [Suspect]
     Active Substance: DIHYDROXYACETONE
     Indication: PRODUCT USED FOR UNKNOWN INDICATION
     Dosage: UNK, UNKNOWN
     Route: 061

REACTIONS (2)
  - Skin discolouration [Unknown]
  - Product odour abnormal [Unknown]
